FAERS Safety Report 25306089 (Version 2)
Quarter: 2025Q2

REPORT INFORMATION
  Report Type: Spontaneous
  Country: AU (occurrence: AU)
  Receive Date: 20250513
  Receipt Date: 20250522
  Transmission Date: 20250717
  Serious: Yes (Hospitalization)
  Sender: TEVA
  Company Number: AU-TEVA-VS-3329693

PATIENT
  Age: 44 Year
  Sex: Male
  Weight: 85 kg

DRUGS (12)
  1. FENTANYL [Suspect]
     Active Substance: FENTANYL
     Indication: Induction of anaesthesia
     Route: 065
  2. ROPIVACAINE [Suspect]
     Active Substance: ROPIVACAINE
     Indication: Induction of anaesthesia
     Route: 065
  3. ALFENTANIL HYDROCHLORIDE [Suspect]
     Active Substance: ALFENTANIL HYDROCHLORIDE
     Indication: Induction of anaesthesia
     Route: 065
  4. PARECOXIB [Concomitant]
     Active Substance: PARECOXIB
     Indication: Product used for unknown indication
     Route: 065
  5. THIOPENTAL SODIUM [Suspect]
     Active Substance: THIOPENTAL SODIUM
     Indication: Induction of anaesthesia
     Route: 065
  6. ACETAMINOPHEN [Concomitant]
     Active Substance: ACETAMINOPHEN
     Indication: Product used for unknown indication
     Route: 065
  7. SUGAMMADEX [Suspect]
     Active Substance: SUGAMMADEX
     Indication: Muscle relaxant therapy
     Route: 065
  8. PROPOFOL [Suspect]
     Active Substance: PROPOFOL
     Indication: Induction of anaesthesia
     Route: 065
  9. DEXAMETHASONE [Concomitant]
     Active Substance: DEXAMETHASONE
     Indication: Product used for unknown indication
     Route: 065
  10. VECURONIUM [Suspect]
     Active Substance: VECURONIUM BROMIDE
     Indication: Muscle relaxant therapy
     Route: 065
  11. ONDANSETRON [Concomitant]
     Active Substance: ONDANSETRON
     Indication: Product used for unknown indication
     Route: 065
  12. SEVOFLURANE [Suspect]
     Active Substance: SEVOFLURANE
     Indication: Induction of anaesthesia
     Route: 065

REACTIONS (1)
  - Delayed recovery from anaesthesia [Recovered/Resolved]
